FAERS Safety Report 4422468-7 (Version None)
Quarter: 2004Q3

REPORT INFORMATION
  Report Type: 
  Country: None (occurrence: None)
  Receive Date: 20040806
  Receipt Date: 20040726
  Transmission Date: 20050211
  Serious: Yes (Hospitalization)
  Sender: FDA-Public Use
  Company Number: US-JNJFOC-20040707125

PATIENT
  Age: 68 Year
  Sex: Female

DRUGS (9)
  1. INFLIXIMAB (INFLIXIMAB, RECOMBINANT) LYOPHILIZED POWDER [Suspect]
     Indication: RHEUMATOID ARTHRITIS
     Dosage: INTRAVENOUS
     Route: 042
     Dates: start: 20010601, end: 20020601
  2. ULTRAM [Concomitant]
  3. ASPIRIN [Concomitant]
  4. PAXIL [Concomitant]
  5. COREG [Concomitant]
  6. PREVACID [Concomitant]
  7. SYNTHROID [Concomitant]
  8. PLAVIX [Concomitant]
  9. LESCOL [Concomitant]

REACTIONS (1)
  - CORONARY ARTERY DISEASE [None]
